FAERS Safety Report 9693044 (Version 3)
Quarter: 2014Q1

REPORT INFORMATION
  Report Type: Report from Study
  Country: DE (occurrence: DE)
  Receive Date: 20131118
  Receipt Date: 20140127
  Transmission Date: 20141002
  Serious: Yes (Death, Hospitalization)
  Sender: FDA-Public Use
  Company Number: DE-BAYER-2013-010518

PATIENT
  Sex: Male
  Weight: 67 kg

DRUGS (6)
  1. REGORAFENIB [Suspect]
     Indication: COLORECTAL CANCER METASTATIC
     Dosage: DAILY DOSE 160 MG
     Route: 048
     Dates: start: 20121210, end: 20121227
  2. FUROSEMID [Concomitant]
     Indication: HYPERTENSION
     Dosage: UNK
     Route: 048
     Dates: start: 1987, end: 20120917
  3. SPIRONOLACTON [Concomitant]
     Indication: ASCITES
     Dosage: 50 MG, UNK
     Route: 048
     Dates: start: 201207
  4. SPIRONOLACTON [Concomitant]
     Indication: ASCITES
     Dosage: 200 MG, UNK
     Route: 048
     Dates: start: 201212
  5. LOPERAMID [Concomitant]
     Indication: DIARRHOEA
     Dosage: UNK UNK, PRN
     Dates: start: 20120724
  6. FURESIS [Concomitant]
     Indication: ASCITES
     Dosage: 80 MG, UNK
     Route: 048
     Dates: start: 201212

REACTIONS (2)
  - General physical health deterioration [Fatal]
  - Ileus [Recovered/Resolved]
